FAERS Safety Report 13667462 (Version 2)
Quarter: 2017Q2

REPORT INFORMATION
  Report Type: Spontaneous
  Country: US (occurrence: US)
  Receive Date: 20170620
  Receipt Date: 20170620
  Transmission Date: 20170830
  Serious: Yes (Hospitalization)
  Sender: FDA-Public Use
  Company Number: US-CIPLA LTD.-2017US10510

PATIENT

DRUGS (7)
  1. LEFLUNOMIDE. [Interacting]
     Active Substance: LEFLUNOMIDE
     Indication: RHEUMATOID ARTHRITIS
     Dosage: 10 MG, QOD
     Route: 065
  2. AMLODIPINE [Suspect]
     Active Substance: AMLODIPINE BESYLATE
     Indication: HYPERTENSION
     Dosage: 10 MG, QD
     Route: 065
  3. LISINOPRIL. [Interacting]
     Active Substance: LISINOPRIL
     Indication: HYPERTENSION
     Dosage: 40 MG, UNK
     Route: 065
  4. LEFLUNOMIDE. [Interacting]
     Active Substance: LEFLUNOMIDE
     Dosage: 20 MG, UNK
     Route: 065
  5. ACETAMINOPHEN-HYDROCODONE [Interacting]
     Active Substance: ACETAMINOPHEN\HYDROCODONE
     Dosage: 325/25 (UNITS UNKNOWN)
     Route: 065
  6. XELJANZ XR [Interacting]
     Active Substance: TOFACITINIB CITRATE
     Indication: RHEUMATOID ARTHRITIS
     Dosage: 11 MG, QD, MORNING AT 8
     Route: 048
     Dates: start: 20160917
  7. LEVOTHYROXINE SODIUM. [Interacting]
     Active Substance: LEVOTHYROXINE SODIUM
     Dosage: 50 MG, UNK
     Route: 065
     Dates: start: 201504

REACTIONS (10)
  - Blister [Unknown]
  - Swelling [Recovering/Resolving]
  - Hypersensitivity [Unknown]
  - Drug interaction [Unknown]
  - Loss of consciousness [Unknown]
  - Insomnia [Unknown]
  - Viral upper respiratory tract infection [Unknown]
  - Pain [Not Recovered/Not Resolved]
  - Arterial disorder [Unknown]
  - Cough [Unknown]

NARRATIVE: CASE EVENT DATE: 20170405
